FAERS Safety Report 14949574 (Version 5)
Quarter: 2018Q3

REPORT INFORMATION
  Report Type: Report from Study
  Country: US (occurrence: US)
  Receive Date: 20180529
  Receipt Date: 20180823
  Transmission Date: 20181010
  Serious: Yes (Hospitalization, Other)
  Sender: FDA-Public Use
  Company Number: PHEH2018US020794

PATIENT
  Sex: Female

DRUGS (10)
  1. TYLENOL [Concomitant]
     Active Substance: ACETAMINOPHEN
     Indication: PAIN
     Dosage: 650 MG, Q6H
     Route: 048
     Dates: start: 20180531
  2. LASIX [Concomitant]
     Active Substance: FUROSEMIDE
     Indication: PRODUCT USED FOR UNKNOWN INDICATION
     Dosage: 2 ML, QD
     Route: 042
     Dates: start: 20180419
  3. ALDACTONE [Concomitant]
     Active Substance: SPIRONOLACTONE
     Indication: PRODUCT USED FOR UNKNOWN INDICATION
     Dosage: 1 DF, QD
     Route: 048
     Dates: start: 20180515, end: 20180515
  4. VITAMIN B COMPLEX [Concomitant]
     Active Substance: CYANOCOBALAMIN\DEXPANTHENOL\NIACINAMIDE\PYRIDOXINE HYDROCHLORIDE\RIBOFLAVIN 5^-PHOSPHATE SODIUM\THIAMINE HYDROCHLORIDE\VITAMIN B COMPLEX
     Indication: PRODUCT USED FOR UNKNOWN INDICATION
     Dosage: 1 DF, QD
     Route: 048
  5. DELTASONE [Concomitant]
     Active Substance: PREDNISONE
     Indication: PRODUCT USED FOR UNKNOWN INDICATION
     Dosage: 10 MG, UNK
     Route: 065
     Dates: start: 20180424
  6. BENADRYL [Concomitant]
     Active Substance: DIPHENHYDRAMINE HYDROCHLORIDE
     Indication: PRODUCT USED FOR UNKNOWN INDICATION
     Dosage: 0.25 ML, QD (12.5 MG)
     Route: 042
     Dates: start: 20180620
  7. PROMACTA [Suspect]
     Active Substance: ELTROMBOPAG OLAMINE
     Indication: PRODUCT USED FOR UNKNOWN INDICATION
     Dosage: 3 DF, QD (1 HOUR BEFORE OR 2 HOURS AFTER A MEAL)
     Route: 048
     Dates: start: 20180605
  8. TIROSINT [Concomitant]
     Active Substance: LEVOTHYROXINE SODIUM
     Indication: PRODUCT USED FOR UNKNOWN INDICATION
     Dosage: 1 DF, QD (88 MCG)
     Route: 048
     Dates: start: 20180612
  9. MACROBID [Concomitant]
     Active Substance: NITROFURANTOIN\NITROFURANTOIN MONOHYDRATE
     Indication: URINARY TRACT INFECTION
     Dosage: 1 DF, BID
     Route: 048
     Dates: start: 20180629, end: 20180701
  10. BENADRYL [Concomitant]
     Active Substance: DIPHENHYDRAMINE HYDROCHLORIDE
     Indication: PRODUCT USED FOR UNKNOWN INDICATION
     Dosage: 12.5 MG, QD  (5 ML)
     Route: 048
     Dates: start: 20180619

REACTIONS (45)
  - Haematochezia [Recovered/Resolved]
  - Thrombocytopenia [Unknown]
  - Barrett^s oesophagus [Unknown]
  - Respiratory failure [Unknown]
  - Cardiac failure congestive [Unknown]
  - Hypokalaemia [Unknown]
  - Essential hypertension [Unknown]
  - Fatigue [Unknown]
  - Anaemia [Unknown]
  - Gastrointestinal haemorrhage [Unknown]
  - Sjogren^s syndrome [Unknown]
  - Myeloproliferative neoplasm [Unknown]
  - Blood bilirubin increased [Unknown]
  - White blood cell count decreased [Unknown]
  - Platelet count decreased [Unknown]
  - Blood urea nitrogen/creatinine ratio increased [Unknown]
  - Blood alkaline phosphatase abnormal [Unknown]
  - Blood sodium decreased [Unknown]
  - Globulins increased [Unknown]
  - Thyroxine free increased [Unknown]
  - Leukopenia [Unknown]
  - Right ventricular failure [Unknown]
  - Albumin globulin ratio [Unknown]
  - Protein total decreased [Unknown]
  - Amegakaryocytic thrombocytopenia [Unknown]
  - Hypoxia [Unknown]
  - Glomerular filtration rate [Unknown]
  - Pulmonary fibrosis [Unknown]
  - Myelodysplastic syndrome [Unknown]
  - Raynaud^s phenomenon [Unknown]
  - Mediastinal disorder [Unknown]
  - Hypothyroidism [Unknown]
  - Pollakiuria [Unknown]
  - Blood albumin decreased [Unknown]
  - Blood glucose increased [Unknown]
  - Mean cell volume abnormal [Unknown]
  - Red blood cell count decreased [Unknown]
  - Red cell distribution width increased [Unknown]
  - Interstitial lung disease [Unknown]
  - Platelet production decreased [Unknown]
  - Blood calcium decreased [Unknown]
  - Carbon dioxide abnormal [Unknown]
  - Haematocrit decreased [Unknown]
  - Hyponatraemia [Unknown]
  - Haemoglobin decreased [Unknown]
